FAERS Safety Report 15403000 (Version 2)
Quarter: 2018Q3

REPORT INFORMATION
  Report Type: Spontaneous
  Country: DE (occurrence: DE)
  Receive Date: 20180919
  Receipt Date: 20180925
  Transmission Date: 20181010
  Serious: Yes (Hospitalization, Other)
  Sender: FDA-Public Use
  Company Number: DE-ALLERGAN-1845072US

PATIENT
  Age: 88 Year
  Sex: Female
  Weight: 80 kg

DRUGS (3)
  1. MEMANTINE HCL ? BP [Suspect]
     Active Substance: MEMANTINE
     Dosage: UNK
     Route: 065
  2. MEMANTINE HCL ? BP [Suspect]
     Active Substance: MEMANTINE
     Indication: DEMENTIA
     Dosage: 15 MG, QD
     Route: 048
  3. MEMANTINE HCL ? BP [Suspect]
     Active Substance: MEMANTINE
     Indication: COGNITIVE DISORDER
     Dosage: 20 MG, QD
     Route: 048

REACTIONS (12)
  - Fall [Unknown]
  - Renal failure [Unknown]
  - Condition aggravated [Unknown]
  - Respiratory disorder [Unknown]
  - Off label use [Unknown]
  - Muscle twitching [Unknown]
  - Somnolence [Unknown]
  - Cardiac disorder [Unknown]
  - Dementia [Unknown]
  - Dyskinesia [Unknown]
  - Confusional state [Unknown]
  - Cystitis noninfective [Unknown]
